FAERS Safety Report 8053147 (Version 2)
Quarter: 2013Q1

REPORT INFORMATION
  Report Type: Spontaneous
  Country: JP (occurrence: JP)
  Receive Date: 20110725
  Receipt Date: 20130102
  Transmission Date: 20140127
  Serious: Yes (Hospitalization)
  Sender: FDA-Public Use
  Company Number: JP-GILEAD-2011-0041806

PATIENT
  Sex: Male

DRUGS (6)
  1. EMTRICITABINE/TENOFOVIR DISOPROXIL FUMARATE [Suspect]
     Indication: HIV INFECTION
     Route: 048
  2. REYATAZ [Suspect]
     Indication: HIV INFECTION
     Route: 048
  3. NORVIR [Concomitant]
     Indication: HIV INFECTION
  4. SULFAMETHOXAZOLE-TRIMETHOPRIM [Concomitant]
     Indication: PNEUMOCYSTIS JIROVECII PNEUMONIA
  5. GANCICLOVIR [Concomitant]
     Indication: CYTOMEGALOVIRUS INFECTION
  6. FOSCAVIR [Concomitant]
     Indication: CYTOMEGALOVIRUS INFECTION

REACTIONS (2)
  - Cytomegalovirus infection [Unknown]
  - Drug interaction [Unknown]
